FAERS Safety Report 12766068 (Version 1)
Quarter: 2016Q3

REPORT INFORMATION
  Report Type: Spontaneous
  Country: US (occurrence: US)
  Receive Date: 20160921
  Receipt Date: 20160921
  Transmission Date: 20161109
  Serious: No
  Sender: FDA-Public Use
  Company Number: US-BAUSCH-BL-2015-024008

PATIENT
  Age: 37 Year
  Sex: Female

DRUGS (4)
  1. EFUDEX [Suspect]
     Active Substance: FLUOROURACIL
     Indication: MELANOCYTIC NAEVUS
     Route: 061
     Dates: start: 201510, end: 20151015
  2. VASERETIC [Concomitant]
     Active Substance: ENALAPRIL MALEATE\HYDROCHLOROTHIAZIDE
     Indication: HYPERTENSION
     Dosage: 10/25, FROM 6 MONTHS
     Route: 048
  3. VASERETIC [Concomitant]
     Active Substance: ENALAPRIL MALEATE\HYDROCHLOROTHIAZIDE
     Indication: RENAL ARTERY STENOSIS
  4. ARMOUR THYROID [Concomitant]
     Active Substance: THYROID, PORCINE
     Indication: THYROID HORMONE REPLACEMENT THERAPY
     Dosage: FROM 6 YEARS
     Route: 048

REACTIONS (4)
  - Nasal discomfort [Not Recovered/Not Resolved]
  - Off label use [Recovered/Resolved]
  - Swelling [Not Recovered/Not Resolved]
  - Scab [Not Recovered/Not Resolved]

NARRATIVE: CASE EVENT DATE: 201510
